FAERS Safety Report 12215516 (Version 1)
Quarter: 2016Q1

REPORT INFORMATION
  Report Type: Spontaneous
  Country: US (occurrence: US)
  Receive Date: 20160328
  Receipt Date: 20160328
  Transmission Date: 20160526
  Serious: No
  Sender: FDA-Public Use
  Company Number: GXBR2016US000725

PATIENT
  Sex: Male
  Weight: 111.11 kg

DRUGS (2)
  1. METFORMIN HYDROCHLORIDE. [Suspect]
     Active Substance: METFORMIN HYDROCHLORIDE
     Indication: DIABETES MELLITUS
     Dosage: 500 MG, BID
     Route: 048
  2. METFORMIN HCL TABLETS [Suspect]
     Active Substance: METFORMIN HYDROCHLORIDE
     Indication: DIABETES MELLITUS
     Dosage: UNK DF, UNK
     Route: 048
     Dates: start: 201508

REACTIONS (1)
  - Diarrhoea [Not Recovered/Not Resolved]
